FAERS Safety Report 6151221-1 (Version None)
Quarter: 2009Q2

REPORT INFORMATION
  Report Type: 
  Country: None (occurrence: None)
  Receive Date: 20090410
  Receipt Date: 20090408
  Transmission Date: 20091009
  Serious: Yes (Hospitalization)
  Sender: FDA-Public Use
  Company Number: FR-BRISTOL-MYERS SQUIBB COMPANY-14580476

PATIENT
  Age: 50 Year
  Sex: Male

DRUGS (4)
  1. COUMADIN [Suspect]
     Dosage: FROM BETWEEN NOV08 AND JAN09 TO 18FEB09
     Route: 048
     Dates: start: 20090101, end: 20090218
  2. ESIDRIX [Suspect]
     Dosage: 1 DF-25MG 1TAB DAILY; FROM BETWEEN NOV08 AND JAN09 TO 18FEB09;
     Route: 048
     Dates: start: 20090101, end: 20090218
  3. DIFFU-K [Concomitant]
     Dosage: 2 DF-2 CAPSULES DAILY; FROM BETWEEN NOV08 AND JAN09 TO 18FEB09
     Route: 048
     Dates: start: 20090101, end: 20090218
  4. DUPHALAC [Concomitant]
     Dosage: 1 DF- 1 INTAKE DAILIY; FROM BETWEEN NOV08 AND JAN09 TO 18FEB09
     Route: 048
     Dates: start: 20090101, end: 20090218

REACTIONS (1)
  - DRUG RASH WITH EOSINOPHILIA AND SYSTEMIC SYMPTOMS [None]
